FAERS Safety Report 10777941 (Version 2)
Quarter: 2015Q1

REPORT INFORMATION
  Report Type: Spontaneous
  Country: US (occurrence: US)
  Receive Date: 20150209
  Receipt Date: 20150211
  Transmission Date: 20150721
  Serious: No
  Sender: FDA-Public Use
  Company Number: US-GLAXOSMITHKLINE-A0612983A

PATIENT

DRUGS (6)
  1. IMITREX [Suspect]
     Active Substance: SUMATRIPTAN\SUMATRIPTAN SUCCINATE
     Indication: MIGRAINE
     Dosage: 100 MG50 MG TABLETS AS NEEDED
     Route: 048
  2. CARBIDOPA/LEVODOPA [Concomitant]
     Active Substance: CARBIDOPA\LEVODOPA
     Dosage: 25/100
  3. PROZAC [Concomitant]
     Active Substance: FLUOXETINE HYDROCHLORIDE
  4. REQUIP [Suspect]
     Active Substance: ROPINIROLE HYDROCHLORIDE
     Indication: RESTLESS LEGS SYNDROME
     Route: 048
     Dates: start: 20060719
  5. KLONOPIN [Concomitant]
     Active Substance: CLONAZEPAM
  6. EVISTA [Concomitant]
     Active Substance: RALOXIFENE HYDROCHLORIDE

REACTIONS (7)
  - Drug ineffective [Unknown]
  - Inner ear disorder [Recovered/Resolved]
  - Insomnia [Unknown]
  - Nausea [Unknown]
  - Vertigo [Recovered/Resolved]
  - Dehydration [Unknown]
  - Bedridden [Unknown]

NARRATIVE: CASE EVENT DATE: 20140503
